FAERS Safety Report 7843214 (Version 4)
Quarter: 2013Q1

REPORT INFORMATION
  Report Type: Report from Study
  Country: CA (occurrence: CA)
  Receive Date: 20110307
  Receipt Date: 20130227
  Transmission Date: 20140127
  Serious: Yes (Death, Life-Threatening, Hospitalization, Other)
  Sender: FDA-Public Use
  Company Number: CA-BRISTOL-MYERS SQUIBB COMPANY-15578800

PATIENT
  Age: 36 Year
  Sex: Female
  Weight: 82.8 kg

DRUGS (15)
  1. CISPLATIN [Suspect]
     Indication: NON-SMALL CELL LUNG CANCER
     Dosage: 10MAY-14JUN10=36DAYS,19JUL-26JUL10=8 DAYS,
     Route: 042
     Dates: start: 20100510, end: 20100826
  2. ETOPOSIDE [Suspect]
     Indication: NON-SMALL CELL LUNG CANCER
     Dosage: 10MAY-11JUN10=33DAYS,19JUL-23JUL10=5 DAYS,
     Route: 042
     Dates: start: 20100510, end: 20100826
  3. FOLIC ACID [Concomitant]
     Dates: start: 20100504
  4. HYDROMORPHONE [Concomitant]
     Dates: start: 201004
  5. DEXAMETHASONE [Concomitant]
     Dates: start: 201004
  6. SENOKOT [Concomitant]
     Dates: start: 201004
  7. COLACE [Concomitant]
     Dates: start: 201003
  8. PROCHLORPERAZINE [Concomitant]
     Dates: start: 20100511
  9. LORAZEPAM [Concomitant]
     Dates: start: 20100507
  10. FENTANYL [Concomitant]
     Dates: start: 20100512
  11. LOSEC [Concomitant]
     Dates: start: 20100616
  12. GRAVOL [Concomitant]
     Dates: start: 20100728
  13. ONDANSETRON [Concomitant]
     Dates: start: 20100728
  14. VITAMIN B12 [Concomitant]
  15. DAPOXETINE HYDROCHLORIDE [Concomitant]
     Indication: COUGH

REACTIONS (2)
  - Bronchopleural fistula [Fatal]
  - Pneumonia bacterial [Fatal]
